FAERS Safety Report 5363337-8 (Version None)
Quarter: 2007Q2

REPORT INFORMATION
  Report Type: 
  Country: None (occurrence: None)
  Receive Date: 20070618
  Receipt Date: 20070607
  Transmission Date: 20071010
  Serious: Yes (Hospitalization)
  Sender: FDA-Public Use
  Company Number: GXKR2007GB04998

PATIENT
  Age: 35 Year
  Sex: Female

DRUGS (1)
  1. WARFARIN SODIUM [Suspect]
     Indication: AORTIC VALVE REPLACEMENT
     Dosage: UNK, UNK, ORAL
     Route: 048

REACTIONS (11)
  - CARDIAC TAMPONADE [None]
  - CHEST INJURY [None]
  - HAEMATOMA [None]
  - HAEMODYNAMIC INSTABILITY [None]
  - HAEMORRHAGE [None]
  - PERICARDIAL CALCIFICATION [None]
  - PERICARDIAL HAEMORRHAGE [None]
  - POST PROCEDURAL FISTULA [None]
  - ROAD TRAFFIC ACCIDENT [None]
  - WOUND ABSCESS [None]
  - WOUND HAEMORRHAGE [None]
